FAERS Safety Report 5426584-2 (Version None)
Quarter: 2007Q3

REPORT INFORMATION
  Report Type: 
  Country: None (occurrence: None)
  Receive Date: 20070731
  Receipt Date: 20070420
  Transmission Date: 20080115
  Serious: No
  Sender: FDA-Public Use
  Company Number: US200704004825

PATIENT
  Age: 48 Year
  Sex: Male

DRUGS (4)
  1. BYETTA [Suspect]
     Indication: TYPE 2 DIABETES MELLITUS
     Dosage: 5 UG, 2/D, SUBC; 10 UG, 2/D, SUBCU; 20 UG, UNK, SUBCUTANEOUS
     Route: 058
     Dates: start: 20070316, end: 20070415
  2. BYETTA [Suspect]
     Indication: TYPE 2 DIABETES MELLITUS
     Dosage: 5 UG, 2/D, SUBC; 10 UG, 2/D, SUBCU; 20 UG, UNK, SUBCUTANEOUS
     Route: 058
     Dates: start: 20070420, end: 20070420
  3. BYETTA [Suspect]
     Indication: TYPE 2 DIABETES MELLITUS
     Dosage: 5 UG, 2/D, SUBC; 10 UG, 2/D, SUBCU; 20 UG, UNK, SUBCUTANEOUS
     Route: 058
     Dates: start: 20070416
  4. AVANDAMMET    (METFORMIN  /ROSIGILITAONE  MALEATE) [Concomitant]

REACTIONS (5)
  - ACCIDENTAL OVERDOSE [None]
  - BLOOD GLUCOSE INCREASED [None]
  - DYSPEPSIA [None]
  - INCORRECT DOSE ADMINISTERED [None]
  - INJECTION SITE PAIN [None]
